FAERS Safety Report 10469933 (Version 1)
Quarter: 2014Q3

REPORT INFORMATION
  Report Type: Spontaneous
  Country: US (occurrence: US)
  Receive Date: 20140923
  Receipt Date: 20140923
  Transmission Date: 20150326
  Serious: No
  Sender: FDA-Public Use
  Company Number: US-SHIONOGI, INC-2014000601

PATIENT
  Age: 51 Year
  Sex: Female

DRUGS (2)
  1. GAMUNEX [Concomitant]
     Active Substance: HUMAN IMMUNOGLOBULIN G
     Indication: SELECTIVE IGG SUBCLASS DEFICIENCY
     Dosage: UNK, EVERY 4 WEEKS
     Route: 042
  2. OSPHENA [Suspect]
     Active Substance: OSPEMIFENE
     Indication: PRODUCT USED FOR UNKNOWN INDICATION
     Dosage: UNK
     Route: 065
     Dates: start: 20140606

REACTIONS (3)
  - Cardiac flutter [Unknown]
  - Muscle spasms [Unknown]
  - Palpitations [Unknown]

NARRATIVE: CASE EVENT DATE: 20140616
